FAERS Safety Report 14301822 (Version 4)
Quarter: 2018Q1

REPORT INFORMATION
  Report Type: Report from Study
  Country: JP (occurrence: JP)
  Receive Date: 20171219
  Receipt Date: 20180202
  Transmission Date: 20180509
  Serious: Yes (Hospitalization)
  Sender: FDA-Public Use
  Company Number: JP-EISAI MEDICAL RESEARCH-EC-2017-034246

PATIENT
  Age: 68 Year
  Sex: Male
  Weight: 87 kg

DRUGS (6)
  1. AZILVA [Concomitant]
     Active Substance: AZILSARTAN KAMEDOXOMIL
  2. DAIKENCHUTO [Concomitant]
     Active Substance: HERBALS
  3. LENVATINIB [Suspect]
     Active Substance: LENVATINIB
     Route: 048
     Dates: start: 20171201, end: 20171213
  4. LANSOPRAZOLE OD [Concomitant]
     Active Substance: LANSOPRAZOLE
  5. LENVATINIB [Suspect]
     Active Substance: LENVATINIB
     Indication: COLON CANCER
     Route: 048
     Dates: start: 20171116, end: 20171130
  6. ADALAT CC [Concomitant]
     Active Substance: NIFEDIPINE

REACTIONS (1)
  - Gastrointestinal perforation [Recovered/Resolved]

NARRATIVE: CASE EVENT DATE: 20171214
